FAERS Safety Report 4459045-8 (Version None)
Quarter: 2004Q3

REPORT INFORMATION
  Report Type: 
  Country: None (occurrence: None)
  Receive Date: 20040927
  Receipt Date: 20040915
  Transmission Date: 20050211
  Serious: Yes (Hospitalization, Other)
  Sender: FDA-Public Use
  Company Number: ES-JNJFOC-20040904024

PATIENT
  Age: 40 Year
  Sex: Male

DRUGS (6)
  1. REMICADE [Suspect]
     Dosage: REMICADE DISCONTINUED AT THE END OF 2003.
     Route: 042
  2. REMICADE [Suspect]
     Route: 042
  3. ENBREL [Concomitant]
  4. NSAID [Concomitant]
  5. PREDNISONE [Concomitant]
     Dosage: 5-15MG
  6. METHOTREXATE [Concomitant]

REACTIONS (3)
  - DRUG INEFFECTIVE [None]
  - LUNG NEOPLASM MALIGNANT [None]
  - TACHYPHYLAXIS [None]
